FAERS Safety Report 9171442 (Version 1)
Quarter: 2013Q1

REPORT INFORMATION
  Report Type: Spontaneous
  Country: LU (occurrence: LU)
  Receive Date: 20130319
  Receipt Date: 20130319
  Transmission Date: 20140127
  Serious: Yes (Hospitalization)
  Sender: FDA-Public Use
  Company Number: LU-ASTRAZENECA-2013SE17457

PATIENT
  Sex: 0

DRUGS (1)
  1. SYNAGIS [Suspect]
     Route: 030
     Dates: start: 201210

REACTIONS (1)
  - Bronchitis [Unknown]
